FAERS Safety Report 7369284-4 (Version None)
Quarter: 2011Q1

REPORT INFORMATION
  Report Type: 
  Country: None (occurrence: None)
  Receive Date: 20110323
  Receipt Date: 20110315
  Transmission Date: 20110831
  Serious: Yes (Death, Hospitalization)
  Sender: FDA-Public Use
  Company Number: A0919283A

PATIENT
  Age: 87 Year
  Sex: Female
  Weight: 62.5 kg

DRUGS (3)
  1. MELPHALAN [Suspect]
     Dosage: 8MG CYCLIC
     Route: 048
     Dates: start: 20100920, end: 20101114
  2. PREDNISONE [Suspect]
     Indication: MULTIPLE MYELOMA
     Dosage: 20MG CYCLIC
     Route: 048
     Dates: start: 20100920, end: 20101114
  3. PAIN MEDICATION [Suspect]
     Route: 065

REACTIONS (9)
  - DEPRESSED LEVEL OF CONSCIOUSNESS [None]
  - DEATH [None]
  - DEHYDRATION [None]
  - RENAL FAILURE [None]
  - ASPIRATION [None]
  - NECK PAIN [None]
  - PAIN IN EXTREMITY [None]
  - BLOOD CREATININE ABNORMAL [None]
  - ASTHENIA [None]
